FAERS Safety Report 5041013-9 (Version None)
Quarter: 2006Q3

REPORT INFORMATION
  Report Type: 
  Country: None (occurrence: None)
  Receive Date: 20060703
  Receipt Date: 20060309
  Transmission Date: 20061208
  Serious: No
  Sender: FDA-Public Use
  Company Number: US-GLAXOSMITHKLINE-A0596931A

PATIENT
  Age: 50 Year
  Sex: Female

DRUGS (5)
  1. PARNATE [Suspect]
     Indication: DEPRESSION
     Dosage: 120MG PER DAY
     Route: 048
  2. LEVOTHYROXINE SODIUM [Concomitant]
  3. ATENOLOL [Concomitant]
  4. TEMAZEPAM [Concomitant]
  5. ARICEPT [Concomitant]

REACTIONS (4)
  - DRUG INEFFECTIVE [None]
  - ILL-DEFINED DISORDER [None]
  - OVERDOSE [None]
  - PHARMACEUTICAL PRODUCT COMPLAINT [None]
